FAERS Safety Report 4708025-3 (Version None)
Quarter: 2005Q2

REPORT INFORMATION
  Report Type: 
  Country: None (occurrence: None)
  Receive Date: 20050629
  Receipt Date: 20050322
  Transmission Date: 20051028
  Serious: No
  Sender: FDA-Public Use
  Company Number: 05P-163-0294877-00

PATIENT
  Age: 67 Year
  Sex: Female
  Weight: 56.6996 kg

DRUGS (4)
  1. HUMIRA [Suspect]
     Indication: RHEUMATOID ARTHRITIS
     Dosage: 40 MG, 1 IN 2 WK, SUBCUTANEOUS
     Route: 058
     Dates: start: 20040601
  2. METHOTREXATE [Concomitant]
  3. DILTIAZEM HYDROCHLORIDE [Concomitant]
  4. FOLIC ACID [Concomitant]

REACTIONS (4)
  - DRY EYE [None]
  - EYE IRRITATION [None]
  - LACRIMATION INCREASED [None]
  - VISUAL DISTURBANCE [None]
